FAERS Safety Report 9552336 (Version 2)
Quarter: 2014Q2

REPORT INFORMATION
  Report Type: Spontaneous
  Country: US (occurrence: None)
  Receive Date: 20130923
  Receipt Date: 20140514
  Transmission Date: 20141212
  Serious: No
  Sender: FDA-Public Use
  Company Number: JPI-P-033454

PATIENT
  Age: 31 Year
  Sex: Female
  Weight: 49.1 kg

DRUGS (7)
  1. XYREM [Suspect]
     Indication: CATAPLEXY
     Route: 048
     Dates: start: 20130626, end: 201307
  2. XYREM [Suspect]
     Indication: NARCOLEPSY
     Route: 048
     Dates: start: 20130626, end: 201307
  3. PROVIGIL [Suspect]
     Indication: PRODUCT USED FOR UNKNOWN INDICATION
  4. WELLBUTRIN (BUPROPION HCL) (BUPROPION HYDROCHLORIDE) [Concomitant]
  5. SINGULAIR [Concomitant]
  6. ADVAIR (FLUTICASONE PROPIONATE) (FLUTICASONE PROPIONATE) [Concomitant]
  7. INHALERS (ANTI-ASTHMATICS) [Concomitant]

REACTIONS (10)
  - Muscle twitching [None]
  - Muscle spasms [None]
  - Poor quality sleep [None]
  - Hunger [None]
  - Gait disturbance [None]
  - Headache [None]
  - Feeling drunk [None]
  - Condition aggravated [None]
  - Gait disturbance [None]
  - Asthenia [None]
